FAERS Safety Report 9447881 (Version 1)
Quarter: 2013Q3

REPORT INFORMATION
  Report Type: Spontaneous
  Country: US (occurrence: None)
  Receive Date: 20130807
  Receipt Date: 20130807
  Transmission Date: 20140515
  Serious: No
  Sender: FDA-Public Use
  Company Number: None

PATIENT
  Sex: Female

DRUGS (7)
  1. XELJANZ [Suspect]
     Dosage: 5 MG  TAKE 1 TABLET BY MOUTH TWICE A DAY
     Route: 048
  2. PRAVASTATIN [Concomitant]
  3. MULTIVITAMIN [Concomitant]
  4. VITAMIN D [Concomitant]
  5. CALCIUM [Concomitant]
  6. PREDNISONE [Concomitant]
  7. IBUPROFEN [Concomitant]

REACTIONS (1)
  - Swollen tongue [None]
